FAERS Safety Report 10152949 (Version 1)
Quarter: 2014Q2

REPORT INFORMATION
  Report Type: Spontaneous
  Country: JP (occurrence: JP)
  Receive Date: 20140505
  Receipt Date: 20140505
  Transmission Date: 20141212
  Serious: Yes (Other)
  Sender: FDA-Public Use
  Company Number: JP-UCBSA-119808

PATIENT
  Sex: 0

DRUGS (3)
  1. XYZAL [Suspect]
     Indication: URTICARIA
     Route: 048
     Dates: start: 20140409, end: 201404
  2. XYZAL [Suspect]
     Indication: URTICARIA
     Route: 048
     Dates: start: 201404
  3. ALLEGRA [Concomitant]
     Dates: start: 20140407, end: 20140409

REACTIONS (3)
  - Monoplegia [Unknown]
  - Limb discomfort [Unknown]
  - Aspartate aminotransferase increased [Unknown]
